FAERS Safety Report 6054804-2 (Version None)
Quarter: 2009Q1

REPORT INFORMATION
  Report Type: 
  Country: None (occurrence: None)
  Receive Date: 20090128
  Receipt Date: 20090123
  Transmission Date: 20090719
  Serious: Yes (Other)
  Sender: FDA-Public Use
  Company Number: US-BIOGENIDEC-2008BI019622

PATIENT
  Age: 57 Year
  Sex: Male

DRUGS (2)
  1. TYSABRI [Suspect]
     Indication: MULTIPLE SCLEROSIS
     Route: 042
     Dates: start: 20070202
  2. AVONEX [Concomitant]
     Indication: MULTIPLE SCLEROSIS
     Route: 030
     Dates: start: 19980401

REACTIONS (7)
  - ACINETOBACTER INFECTION [None]
  - DRUG SPECIFIC ANTIBODY PRESENT [None]
  - ENTEROCOCCAL INFECTION [None]
  - OSTEOMYELITIS [None]
  - SKIN INFECTION [None]
  - SKIN ULCER [None]
  - TOE OPERATION [None]
